FAERS Safety Report 18464950 (Version 1)
Quarter: 2020Q4

REPORT INFORMATION
  Report Type: Report from Study
  Country: BR (occurrence: BR)
  Receive Date: 20201104
  Receipt Date: 20201104
  Transmission Date: 20210114
  Serious: Yes (Life-Threatening)
  Sender: FDA-Public Use
  Company Number: BR-TAKEDA-2020TUS047917

PATIENT

DRUGS (3)
  1. FIRAZYR [Suspect]
     Active Substance: ICATIBANT ACETATE
     Indication: HEREDITARY ANGIOEDEMA
     Dosage: UNK
     Route: 065
  2. FIRAZYR [Suspect]
     Active Substance: ICATIBANT ACETATE
     Indication: HEREDITARY ANGIOEDEMA
     Dosage: UNK
     Route: 065
  3. FLUOXETIN [Concomitant]
     Active Substance: FLUOXETINE HYDROCHLORIDE
     Indication: PANIC ATTACK
     Dosage: UNK
     Dates: start: 20190815

REACTIONS (11)
  - Laryngeal oedema [Recovered/Resolved]
  - Chest pain [Recovered/Resolved]
  - Panic disorder [Recovered/Resolved]
  - Speech disorder [Recovered/Resolved]
  - Chills [Recovered/Resolved]
  - Injection site inflammation [Recovered/Resolved]
  - Dysphonia [Recovered/Resolved]
  - Mouth swelling [Recovered/Resolved]
  - Feeding disorder [Recovered/Resolved]
  - Injection site mass [Recovered/Resolved]
  - Injection site erythema [Recovered/Resolved]

NARRATIVE: CASE EVENT DATE: 20190815
